FAERS Safety Report 5014113-7 (Version None)
Quarter: 2006Q2

REPORT INFORMATION
  Report Type: 
  Country: None (occurrence: None)
  Receive Date: 20060414
  Receipt Date: 20060110
  Transmission Date: 20061013
  Serious: No
  Sender: FDA-Public Use
  Company Number: 2006SP000148

PATIENT
  Age: 35 Year
  Sex: Male

DRUGS (1)
  1. LUNESTA [Suspect]
     Dosage: HS; ORAL
     Route: 048
     Dates: start: 20060109

REACTIONS (2)
  - PARAESTHESIA OF GENITAL MALE [None]
  - PRIAPISM [None]
